FAERS Safety Report 6556711-5 (Version None)
Quarter: 2010Q1

REPORT INFORMATION
  Report Type: 
  Country: None (occurrence: None)
  Receive Date: 20100128
  Receipt Date: 20100115
  Transmission Date: 20100710
  Serious: Yes (Other)
  Sender: FDA-Public Use
  Company Number: US-BAYER-201010917BCC

PATIENT
  Age: 74 Year
  Sex: Female

DRUGS (3)
  1. ALEVE (CAPLET) [Suspect]
     Indication: DRUG USE FOR UNKNOWN INDICATION
     Route: 048
  2. ZANTAC [Concomitant]
     Route: 065
  3. DIURETIC [Concomitant]
     Route: 065

REACTIONS (1)
  - RENAL DISORDER [None]
